FAERS Safety Report 6736173-5 (Version None)
Quarter: 2010Q2

REPORT INFORMATION
  Report Type: 
  Country: None (occurrence: None)
  Receive Date: 20100521
  Receipt Date: 20100513
  Transmission Date: 20101027
  Serious: Yes (Hospitalization, Other)
  Sender: FDA-Public Use
  Company Number: US-ROCHE-700679

PATIENT
  Sex: Female

DRUGS (4)
  1. RIBAVIRIN [Suspect]
     Indication: HEPATITIS C
     Dosage: DIVIDED DOSES
     Route: 048
     Dates: start: 20100421
  2. PEGASYS [Suspect]
     Indication: HEPATITIS C
     Dosage: FORM: PRE FILLED SYRINGE
     Route: 058
     Dates: start: 20100421
  3. WELLBUTRIN [Concomitant]
  4. LANTUS [Concomitant]
     Indication: BLOOD GLUCOSE

REACTIONS (24)
  - ABDOMINAL PAIN UPPER [None]
  - AGGRESSION [None]
  - BACK PAIN [None]
  - BLOOD GLUCOSE INCREASED [None]
  - CHILLS [None]
  - DIZZINESS [None]
  - DYSPNOEA [None]
  - FATIGUE [None]
  - FEELING OF BODY TEMPERATURE CHANGE [None]
  - HEADACHE [None]
  - HYPOPHAGIA [None]
  - INFLUENZA [None]
  - IRRITABILITY [None]
  - MEMORY IMPAIRMENT [None]
  - MUCOSAL ULCERATION [None]
  - NAUSEA [None]
  - PAIN [None]
  - PAIN IN EXTREMITY [None]
  - PRURITUS [None]
  - PYREXIA [None]
  - RASH PRURITIC [None]
  - RETCHING [None]
  - SUICIDAL IDEATION [None]
  - VOMITING [None]
